FAERS Safety Report 18509003 (Version 1)
Quarter: 2020Q4

REPORT INFORMATION
  Report Type: Other
  Country: CA (occurrence: CA)
  Receive Date: 20201117
  Receipt Date: 20201117
  Transmission Date: 20210114
  Serious: Yes (Hospitalization, Other)
  Sender: FDA-Public Use
  Company Number: CA-CELLTRION INC.-2020CA031249

PATIENT

DRUGS (15)
  1. LIPITOR [Concomitant]
     Active Substance: ATORVASTATIN CALCIUM
  2. COUMADIN [Concomitant]
     Active Substance: WARFARIN SODIUM
  3. OMALIZUMAB. [Concomitant]
     Active Substance: OMALIZUMAB
  4. ALVESCO [Concomitant]
     Active Substance: CICLESONIDE
  5. PARIET [Concomitant]
     Active Substance: RABEPRAZOLE SODIUM
  6. PREDNISONE. [Concomitant]
     Active Substance: PREDNISONE
  7. VENTOLIN [Concomitant]
     Active Substance: ALBUTEROL SULFATE
  8. ATIVAN [Concomitant]
     Active Substance: LORAZEPAM
  9. CELEBREX [Concomitant]
     Active Substance: CELECOXIB
  10. MORPHINE [Concomitant]
     Active Substance: MORPHINE
  11. SYMBICORT [Concomitant]
     Active Substance: BUDESONIDE\FORMOTEROL FUMARATE DIHYDRATE
  12. RITUXIMAB (UNKNOWN) [Suspect]
     Active Substance: RITUXIMAB
     Indication: RHEUMATOID ARTHRITIS
     Route: 042
  13. CITALOPRAM HYDROBROMIDE. [Concomitant]
     Active Substance: CITALOPRAM HYDROBROMIDE
  14. HYDROXYCHLOROQUINE SULFATE. [Concomitant]
     Active Substance: HYDROXYCHLOROQUINE SULFATE
  15. NITROGLYCERIN. [Concomitant]
     Active Substance: NITROGLYCERIN

REACTIONS (5)
  - Arthralgia [Unknown]
  - Thrombosis [Unknown]
  - Pain in extremity [Unknown]
  - Coma [Unknown]
  - Neck pain [Unknown]
